FAERS Safety Report 8002881-1 (Version None)
Quarter: 2011Q4

REPORT INFORMATION
  Report Type: 
  Country: None (occurrence: None)
  Receive Date: 20111222
  Receipt Date: 20110126
  Transmission Date: 20120403
  Serious: No
  Sender: FDA-Public Use
  Company Number: US-GLAXOSMITHKLINE-A0909484A

PATIENT
  Age: 86 Year
  Sex: Male

DRUGS (2)
  1. AVODART [Suspect]
     Indication: BENIGN PROSTATIC HYPERPLASIA
     Dosage: 1CAP PER DAY
     Route: 048
     Dates: start: 20110124
  2. ANTIBIOTIC [Concomitant]

REACTIONS (3)
  - DRUG ADMINISTRATION ERROR [None]
  - ORAL DISCOMFORT [None]
  - THROAT IRRITATION [None]
